FAERS Safety Report 19205610 (Version 1)
Quarter: 2021Q2

REPORT INFORMATION
  Report Type: Spontaneous
  Country: US (occurrence: US)
  Receive Date: 20210503
  Receipt Date: 20210503
  Transmission Date: 20210717
  Serious: No
  Sender: FDA-Public Use
  Company Number: US-FARMAPROD-202101-0075

PATIENT
  Age: 61 Year
  Sex: Female

DRUGS (1)
  1. OXERVATE [Suspect]
     Active Substance: CENEGERMIN-BKBJ
     Indication: NEUROTROPHIC KERATOPATHY
     Route: 047
     Dates: start: 20210104, end: 20210301

REACTIONS (7)
  - Eye pain [Not Recovered/Not Resolved]
  - Accidental overdose [Unknown]
  - Migraine [Not Recovered/Not Resolved]
  - Foreign body sensation in eyes [Unknown]
  - Periorbital swelling [Not Recovered/Not Resolved]
  - Nasal discomfort [Unknown]
  - Eyelid pain [Unknown]

NARRATIVE: CASE EVENT DATE: 20210104
